FAERS Safety Report 6043232-1 (Version None)
Quarter: 2009Q1

REPORT INFORMATION
  Report Type: 
  Country: None (occurrence: None)
  Receive Date: 20090119
  Receipt Date: 20090109
  Transmission Date: 20090719
  Serious: Yes (Other)
  Sender: FDA-Public Use
  Company Number: US-ELI_LILLY_AND_COMPANY-US200901001580

PATIENT
  Sex: Female

DRUGS (9)
  1. BYETTA [Suspect]
     Indication: TYPE 2 DIABETES MELLITUS
     Dosage: 5 UG, 2/D
     Route: 058
     Dates: start: 20070101, end: 20070201
  2. BYETTA [Suspect]
     Dosage: 10 UG, 2/D
     Route: 058
     Dates: start: 20070201
  3. BYETTA [Suspect]
     Dosage: 10 UG, 2/D
     Route: 058
  4. BYETTA [Suspect]
     Dosage: 10 UG, 2/D
     Route: 058
  5. CELEBREX [Concomitant]
     Indication: ARTHRITIS
     Dosage: UNK, UNK
     Dates: start: 20060101, end: 20080101
  6. PIOGLITAZONE [Concomitant]
     Dosage: 30 MG, DAILY (1/D)
     Dates: start: 20070101
  7. GLIPIZIDE [Concomitant]
     Dosage: 7.5 MG, EACH EVENING
     Dates: start: 20070101
  8. METFORMIN [Concomitant]
     Dosage: 1000 MG, EACH MORNING
     Dates: start: 20070101
  9. METFORMIN [Concomitant]
     Dosage: 1000 MG, EACH EVENING
     Dates: start: 20070101

REACTIONS (5)
  - BLOOD CREATININE INCREASED [None]
  - BLOOD GLUCOSE INCREASED [None]
  - HIP ARTHROPLASTY [None]
  - RENAL DISORDER [None]
  - VOMITING [None]
